FAERS Safety Report 9253104 (Version 2)
Quarter: 2013Q2

REPORT INFORMATION
  Report Type: Spontaneous
  Country: US (occurrence: US)
  Receive Date: 20130424
  Receipt Date: 20130527
  Transmission Date: 20140414
  Serious: No
  Sender: FDA-Public Use
  Company Number: US-B.I. PHARMACEUTICALS,INC./RIDGEFIELD-2013-BI-10346BP

PATIENT
  Age: 80 Year
  Sex: Male

DRUGS (10)
  1. SPIRIVA [Suspect]
     Indication: CHRONIC OBSTRUCTIVE PULMONARY DISEASE
     Dosage: 18 MCG
     Route: 055
     Dates: start: 2008
  2. CLONIDINE [Concomitant]
     Dosage: 3 MG
     Route: 048
  3. ALBUTEROL [Concomitant]
     Route: 055
  4. CARVEDILOL [Concomitant]
     Dosage: 50 MG
     Route: 048
  5. FUROSEMIDE [Concomitant]
     Dosage: 40 MG
     Route: 048
  6. SIMVASTATIN [Concomitant]
     Dosage: 10 MG
     Route: 048
  7. KLOR CON [Concomitant]
     Route: 048
  8. SYMBICORT [Concomitant]
     Route: 055
  9. PROAIR [Concomitant]
     Route: 055
  10. AMLODIPINE [Concomitant]
     Dosage: 5 MG
     Route: 048

REACTIONS (2)
  - Memory impairment [Not Recovered/Not Resolved]
  - Product quality issue [Unknown]
